FAERS Safety Report 13395696 (Version 1)
Quarter: 2017Q2

REPORT INFORMATION
  Report Type: Spontaneous
  Country: US (occurrence: US)
  Receive Date: 20170403
  Receipt Date: 20170403
  Transmission Date: 20170830
  Serious: No
  Sender: FDA-Public Use
  Company Number: US-BEH-2017079302

PATIENT
  Age: 62 Year
  Sex: Male
  Weight: 99.77 kg

DRUGS (1)
  1. PRIVIGEN [Suspect]
     Active Substance: HUMAN IMMUNOGLOBULIN G
     Indication: IMMUNODEFICIENCY
     Dosage: 500 MG/KG, QMT
     Route: 042
     Dates: start: 20161103

REACTIONS (1)
  - Tremor [Unknown]
